FAERS Safety Report 21564563 (Version 2)
Quarter: 2022Q4

REPORT INFORMATION
  Report Type: Spontaneous
  Country: DE (occurrence: DE)
  Receive Date: 20221108
  Receipt Date: 20221229
  Transmission Date: 20230112
  Serious: Yes (Life-Threatening, Hospitalization, Other)
  Sender: FDA-Public Use
  Company Number: DE-BoehringerIngelheim-2022-BI-201537

PATIENT
  Age: 45 Year
  Sex: Male
  Weight: 142 kg

DRUGS (4)
  1. JARDIANCE [Suspect]
     Active Substance: EMPAGLIFLOZIN
     Indication: Type 2 diabetes mellitus
     Dosage: 1-0-0-0
     Route: 048
     Dates: start: 202011, end: 202207
  2. Januvia 50 mg Filmtabletten [Concomitant]
     Indication: Type 2 diabetes mellitus
     Dosage: 1-0-0-0
  3. Metformin AbZ 1000 mg Filmtabletten [Concomitant]
     Indication: Type 2 diabetes mellitus
     Dosage: 1-0-1-0
  4. Haldol decanoas Depotspritze [Concomitant]
     Indication: Product used for unknown indication
     Dosage: 1X ALL 4 WEEKS
     Route: 030

REACTIONS (5)
  - Sepsis [Unknown]
  - Fournier^s gangrene [Recovered/Resolved with Sequelae]
  - Prostatic abscess [Unknown]
  - Inflammatory marker increased [Unknown]
  - Anal abscess [Unknown]

NARRATIVE: CASE EVENT DATE: 20201101
